FAERS Safety Report 16060660 (Version 1)
Quarter: 2019Q1

REPORT INFORMATION
  Report Type: Spontaneous
  Country: US (occurrence: US)
  Receive Date: 20190312
  Receipt Date: 20190312
  Transmission Date: 20190418
  Serious: No
  Sender: FDA-Public Use
  Company Number: PHEH2019US009917

PATIENT
  Sex: Female

DRUGS (1)
  1. ZOFRAN [Suspect]
     Active Substance: ONDANSETRON HYDROCHLORIDE
     Indication: NAUSEA
     Dosage: 3 DF, QD (2 TO 3 DOSE DAILY)
     Route: 065

REACTIONS (4)
  - Heart rate irregular [Unknown]
  - Nausea [Unknown]
  - Malaise [Unknown]
  - Incorrect dose administered [Unknown]
